FAERS Safety Report 12341087 (Version 1)
Quarter: 2016Q2

REPORT INFORMATION
  Report Type: Spontaneous
  Country: US (occurrence: US)
  Receive Date: 20160506
  Receipt Date: 20160506
  Transmission Date: 20160815
  Serious: No
  Sender: FDA-Public Use
  Company Number: US-ALLERGAN-1522236US

PATIENT
  Sex: Female

DRUGS (1)
  1. ZYMAXID [Suspect]
     Active Substance: GATIFLOXACIN
     Indication: EYE INFECTION
     Dosage: UNK
     Route: 047
     Dates: start: 20151023, end: 20151023

REACTIONS (3)
  - Eye irritation [Not Recovered/Not Resolved]
  - Product packaging issue [Unknown]
  - Product physical consistency issue [Unknown]

NARRATIVE: CASE EVENT DATE: 20151023
